FAERS Safety Report 6392511-7 (Version None)
Quarter: 2009Q4

REPORT INFORMATION
  Report Type: 
  Country: None (occurrence: None)
  Receive Date: 20091007
  Receipt Date: 20090925
  Transmission Date: 20100525
  Serious: Yes (Other)
  Sender: FDA-Public Use
  Company Number: JP-BAXTER-2009BH014269

PATIENT
  Age: 59 Year
  Sex: Male
  Weight: 62 kg

DRUGS (3)
  1. SORBITOL 3% IN PLASTIC CONTAINER [Suspect]
     Indication: TRANSURETHRAL PROSTATECTOMY
     Route: 066
     Dates: start: 20081010
  2. SEVOFLURANE [Concomitant]
     Indication: ANAESTHESIA
     Route: 065
     Dates: start: 20081010, end: 20081010
  3. FENTANYL-100 [Concomitant]
     Indication: ANAESTHESIA
     Route: 065
     Dates: start: 20081010, end: 20081010

REACTIONS (3)
  - TRACHEAL OEDEMA [None]
  - TRACHEAL STENOSIS [None]
  - TRANSURETHRAL RESECTION SYNDROME [None]
